FAERS Safety Report 6238099-2 (Version None)
Quarter: 2009Q2

REPORT INFORMATION
  Report Type: 
  Country: None (occurrence: None)
  Receive Date: 20090622
  Receipt Date: 20090608
  Transmission Date: 20091009
  Serious: Yes (Hospitalization)
  Sender: FDA-Public Use
  Company Number: US-ELI_LILLY_AND_COMPANY-US200906002221

PATIENT
  Sex: Female

DRUGS (9)
  1. ZYPREXA [Suspect]
     Indication: CONFUSIONAL STATE
     Dosage: 10 MG, DAILY (1/D)
     Dates: start: 20090530, end: 20090607
  2. ZYPREXA [Suspect]
     Dosage: 2.5 MG, DAILY (1/D)
     Dates: start: 20090605, end: 20090607
  3. ZYPREXA [Suspect]
     Dosage: 5 MG, DAILY (1/D)
     Dates: start: 20090607
  4. CYMBALTA [Suspect]
     Indication: ANXIETY
     Dosage: 60 MG, DAILY (1/D)
     Dates: start: 20090501, end: 20090501
  5. CYMBALTA [Suspect]
     Dosage: 90 MG, DAILY (1/D)
     Dates: start: 20090501, end: 20090528
  6. DEPAKOTE [Concomitant]
     Dosage: 250 MG, 3/D
     Dates: start: 20090530, end: 20090101
  7. DEPAKOTE [Concomitant]
     Dosage: 500 MG, DAILY (1/D)
     Dates: start: 20090101, end: 20090101
  8. DEPAKOTE [Concomitant]
     Dosage: 250 MG, DAILY (1/D)
     Dates: start: 20090101
  9. ANTIHYPERTENSIVES [Concomitant]
     Indication: HYPERTENSION

REACTIONS (8)
  - ABNORMAL BEHAVIOUR [None]
  - CONFUSIONAL STATE [None]
  - DRUG INEFFECTIVE [None]
  - FEELING ABNORMAL [None]
  - LOGORRHOEA [None]
  - OFF LABEL USE [None]
  - SCREAMING [None]
  - SLEEP DISORDER [None]
